FAERS Safety Report 18640556 (Version 1)
Quarter: 2020Q4

REPORT INFORMATION
  Report Type: Spontaneous
  Country: CH (occurrence: CH)
  Receive Date: 20201221
  Receipt Date: 20201221
  Transmission Date: 20210114
  Serious: Yes (Hospitalization, Other)
  Sender: FDA-Public Use
  Company Number: CH-REGENERON PHARMACEUTICALS, INC.-2020-95582

PATIENT

DRUGS (1)
  1. EYLEA [Suspect]
     Active Substance: AFLIBERCEPT
     Indication: NEOVASCULAR AGE-RELATED MACULAR DEGENERATION
     Dosage: 1 DF, ONCE INTO RIGHT EYE
     Route: 031
     Dates: start: 20200910, end: 20200910

REACTIONS (6)
  - Retinal vein thrombosis [Unknown]
  - Blindness [Unknown]
  - Retinal haemorrhage [Recovering/Resolving]
  - Haemorrhagic vasculitis [Unknown]
  - Eye inflammation [Unknown]
  - Endophthalmitis [Unknown]

NARRATIVE: CASE EVENT DATE: 202009
